FAERS Safety Report 18985538 (Version 2)
Quarter: 2024Q3

REPORT INFORMATION
  Report Type: Spontaneous
  Country: DE (occurrence: DE)
  Receive Date: 20210309
  Receipt Date: 20240809
  Transmission Date: 20241016
  Serious: No
  Sender: ASTELLAS
  Company Number: DE-ASTELLAS-2021US007702

PATIENT
  Age: 77 Year
  Sex: Male

DRUGS (1)
  1. MIRABEGRON [Suspect]
     Active Substance: MIRABEGRON
     Indication: Micturition disorder
     Route: 065
     Dates: start: 20210222, end: 20210228

REACTIONS (2)
  - Abnormal dreams [Unknown]
  - Hypertension [Unknown]
